FAERS Safety Report 14964910 (Version 1)
Quarter: 2018Q2

REPORT INFORMATION
  Report Type: Spontaneous
  Country: TH (occurrence: TH)
  Receive Date: 20180601
  Receipt Date: 20180601
  Transmission Date: 20180711
  Serious: Yes (Death)
  Sender: FDA-Public Use
  Company Number: PHHY2018TH012131

PATIENT
  Age: 48 Year
  Sex: Male

DRUGS (4)
  1. ITRACONAZOLE. [Suspect]
     Active Substance: ITRACONAZOLE
     Indication: PYTHIUM INSIDIOSUM INFECTION
     Route: 065
  2. POTASSIUM IODATE [Suspect]
     Active Substance: POTASSIUM IODATE
     Indication: PYTHIUM INSIDIOSUM INFECTION
     Route: 065
  3. TERBINAFINE. [Suspect]
     Active Substance: TERBINAFINE
     Indication: PYTHIUM INSIDIOSUM INFECTION
     Route: 065
  4. CASPOFUNGIN [Suspect]
     Active Substance: CASPOFUNGIN
     Indication: PYTHIUM INSIDIOSUM INFECTION
     Route: 065

REACTIONS (2)
  - Sepsis [Fatal]
  - Product use in unapproved indication [Unknown]
